FAERS Safety Report 5849679-8 (Version None)
Quarter: 2008Q3

REPORT INFORMATION
  Report Type: 
  Country: None (occurrence: None)
  Receive Date: 20080818
  Receipt Date: 20080818
  Transmission Date: 20090109
  Serious: Yes (Hospitalization, Other)
  Sender: FDA-Public Use
  Company Number: None

PATIENT
  Age: 54 Year
  Sex: Male
  Weight: 79.3795 kg

DRUGS (1)
  1. NEUMEGA [Suspect]
     Indication: PLATELET COUNT DECREASED
     Dosage: 5 MG 1 SQ
     Route: 058
     Dates: start: 20080729, end: 20080729

REACTIONS (5)
  - DIZZINESS [None]
  - DYSARTHRIA [None]
  - DYSPNOEA [None]
  - FATIGUE [None]
  - PALPITATIONS [None]
